FAERS Safety Report 9140207 (Version 3)
Quarter: 2013Q1

REPORT INFORMATION
  Report Type: Report from Study
  Country: KR (occurrence: KR)
  Receive Date: 20130305
  Receipt Date: 20130315
  Transmission Date: 20140127
  Serious: Yes (Hospitalization)
  Sender: FDA-Public Use
  Company Number: KR-009507513-1303KOR000080

PATIENT
  Age: 55 Year
  Sex: Female
  Weight: 63.5 kg

DRUGS (9)
  1. BLINDED BOCEPREVIR [Suspect]
     Indication: HEPATITIS C
     Dosage: UNK
     Route: 048
     Dates: start: 20120514
  2. BLINDED POST TRIAL THERAPY [Suspect]
     Indication: HEPATITIS C
     Dosage: UNK
     Route: 048
     Dates: start: 20120514
  3. BLINDED PRE TRIAL THERAPY [Suspect]
     Indication: HEPATITIS C
     Dosage: UNK
     Route: 048
     Dates: start: 20120514
  4. BLINDED RIBAVIRIN [Suspect]
     Indication: HEPATITIS C
     Dosage: UNK
     Route: 048
     Dates: start: 20120514
  5. RIBAVIRIN [Suspect]
     Indication: HEPATITIS C
     Dosage: 1000 MG, QD
     Route: 048
     Dates: start: 20120416
  6. INTERFERON (UNSPECIFIED) [Suspect]
     Indication: HEPATITIS C
     Dosage: 120 MICROGRAM, QW
     Route: 058
     Dates: start: 20120416
  7. AMINO ACIDS [Suspect]
     Indication: ASTHENIA
     Dosage: 500 ML, QD
     Route: 042
     Dates: start: 20130117, end: 20130117
  8. AMINO ACIDS [Suspect]
     Dosage: 500 ML, QD
     Route: 042
     Dates: start: 20130122, end: 20130122
  9. AMINO ACIDS [Suspect]
     Dosage: 500 ML, QD
     Route: 042
     Dates: start: 20130207, end: 20130207

REACTIONS (4)
  - Dyspepsia [Recovered/Resolved]
  - Headache [Recovered/Resolved]
  - Asthenia [Recovered/Resolved]
  - Hypophagia [None]
